FAERS Safety Report 4279877-9 (Version None)
Quarter: 2004Q1

REPORT INFORMATION
  Report Type: 
  Country: None (occurrence: None)
  Receive Date: 20040126
  Receipt Date: 20040114
  Transmission Date: 20041129
  Serious: Yes (Other)
  Sender: FDA-Public Use
  Company Number: NSADSS2002028027

PATIENT
  Age: 66 Year
  Sex: Female
  Weight: 61.2356 kg

DRUGS (15)
  1. REMICADE [Suspect]
     Indication: RHEUMATOID ARTHRITIS
     Dosage: SEE IMAGE
     Route: 041
     Dates: start: 20010815, end: 20010815
  2. REMICADE [Suspect]
     Indication: RHEUMATOID ARTHRITIS
     Dosage: SEE IMAGE
     Route: 041
     Dates: start: 20010911, end: 20010911
  3. REMICADE [Suspect]
     Indication: RHEUMATOID ARTHRITIS
     Dosage: SEE IMAGE
     Route: 041
     Dates: start: 20011106, end: 20011106
  4. REMICADE [Suspect]
     Indication: RHEUMATOID ARTHRITIS
     Dosage: SEE IMAGE
     Route: 041
     Dates: start: 20011227, end: 20011227
  5. REMICADE [Suspect]
     Indication: RHEUMATOID ARTHRITIS
     Dosage: SEE IMAGE
     Route: 041
     Dates: start: 20020219, end: 20020219
  6. REMICADE [Suspect]
     Indication: RHEUMATOID ARTHRITIS
     Dosage: SEE IMAGE
     Route: 041
     Dates: start: 20020418, end: 20020418
  7. REMICADE [Suspect]
     Indication: RHEUMATOID ARTHRITIS
     Dosage: SEE IMAGE
     Route: 041
     Dates: start: 20020602, end: 20020602
  8. REMICADE [Suspect]
     Indication: RHEUMATOID ARTHRITIS
     Dosage: SEE IMAGE
     Route: 041
     Dates: start: 20020722, end: 20020722
  9. REMICADE [Suspect]
     Indication: RHEUMATOID ARTHRITIS
     Dosage: SEE IMAGE
     Route: 041
     Dates: start: 20020722, end: 20020722
  10. REMICADE [Suspect]
     Indication: RHEUMATOID ARTHRITIS
     Dosage: SEE IMAGE
     Route: 041
     Dates: start: 20020807, end: 20020807
  11. METHOTREXATE [Concomitant]
  12. PREDNISONE [Concomitant]
  13. FOLIC ACID [Concomitant]
  14. VIOXX [Concomitant]
  15. CALCIUM WITH VITAMIN D (CALICUM WITH VITAMIN D) [Concomitant]

REACTIONS (21)
  - ALLERGY TO ARTHROPOD BITE [None]
  - ARTHRITIS [None]
  - BLOOD CALCIUM INCREASED [None]
  - CARPAL TUNNEL SYNDROME [None]
  - CYST [None]
  - ELECTROMYOGRAM ABNORMAL [None]
  - EYELID OEDEMA [None]
  - GRANULOMA [None]
  - HEAT STROKE [None]
  - HEPATIC ENZYME INCREASED [None]
  - HEPATIC LESION [None]
  - HODGKIN'S DISEASE STAGE III [None]
  - LUNG NEOPLASM [None]
  - LYMPHADENOPATHY [None]
  - NECROSIS [None]
  - PANNICULITIS [None]
  - PULMONARY SARCOIDOSIS [None]
  - RENAL FAILURE [None]
  - SPLENOMEGALY [None]
  - TOOTH ABSCESS [None]
  - WEIGHT DECREASED [None]
